FAERS Safety Report 7525244-1 (Version None)
Quarter: 2011Q2

REPORT INFORMATION
  Report Type: 
  Country: None (occurrence: None)
  Receive Date: 20110602
  Receipt Date: 20110602
  Transmission Date: 20111010
  Serious: Yes (Life-Threatening, Hospitalization, Disabling, Congenital Anomaly, Other)
  Sender: FDA-Public Use
  Company Number: None

PATIENT
  Sex: Male
  Weight: 61.2356 kg

DRUGS (2)
  1. HALOPERIDOL [Suspect]
     Indication: DEPRESSION
     Dosage: 5 MG BEDTIME; 2 MG TWICE A DAY
     Dates: start: 20081214, end: 20081220
  2. HALOPERIDOL [Suspect]
     Indication: STRESS
     Dosage: 5 MG BEDTIME; 2 MG TWICE A DAY
     Dates: start: 20081214, end: 20081220

REACTIONS (2)
  - PAIN IN JAW [None]
  - TOOTH FRACTURE [None]
